FAERS Safety Report 5683443-8 (Version None)
Quarter: 2008Q1

REPORT INFORMATION
  Report Type: 
  Country: None (occurrence: None)
  Receive Date: 20080326
  Receipt Date: 20080313
  Transmission Date: 20080703
  Serious: Yes (Hospitalization, Other)
  Sender: FDA-Public Use
  Company Number: DAV-AE-HCTZ-08-003

PATIENT
  Age: 70 Year
  Sex: Female

DRUGS (3)
  1. HYDROCHLOROTHIAZIDE [Suspect]
     Indication: HYPERTENSION
     Dosage: 12.5MG X 1 DOSE
  2. BISOPROLOL FUMARATE [Concomitant]
  3. ACETYLSALICYLIC ACID SRT [Concomitant]

REACTIONS (23)
  - AGITATION [None]
  - BACK PAIN [None]
  - CARDIAC OUTPUT DECREASED [None]
  - CHILLS [None]
  - CONFUSIONAL STATE [None]
  - CYANOSIS [None]
  - DIZZINESS [None]
  - DYSPNOEA [None]
  - FAECAL INCONTINENCE [None]
  - FEELING COLD [None]
  - HOT FLUSH [None]
  - HYPERHIDROSIS [None]
  - HYPERVENTILATION [None]
  - HYPOXIA [None]
  - MALAISE [None]
  - NAUSEA [None]
  - PERIPHERAL COLDNESS [None]
  - PULMONARY OEDEMA [None]
  - RALES [None]
  - SHOCK [None]
  - URINARY INCONTINENCE [None]
  - VASOCONSTRICTION [None]
  - VOMITING [None]
